FAERS Safety Report 9258224 (Version 2)
Quarter: 2013Q3

REPORT INFORMATION
  Report Type: Spontaneous
  Country: US (occurrence: US)
  Receive Date: 20130426
  Receipt Date: 20130910
  Transmission Date: 20140515
  Serious: Yes (Other)
  Sender: FDA-Public Use
  Company Number: US-ASTRAZENECA-2013SE27376

PATIENT
  Sex: Male
  Weight: 136.1 kg

DRUGS (13)
  1. NEXIUM [Suspect]
     Indication: GASTRIC DISORDER
     Dosage: 40 MG 2 CAPSULES
     Route: 048
     Dates: start: 2006, end: 2013
  2. NEXIUM [Suspect]
     Indication: MALAISE
     Dosage: 40 MG 2 CAPSULES
     Route: 048
     Dates: start: 2006, end: 2013
  3. NEXIUM [Suspect]
     Indication: GASTRIC DISORDER
     Route: 048
     Dates: start: 20110207
  4. NEXIUM [Suspect]
     Indication: MALAISE
     Route: 048
     Dates: start: 20110207
  5. TUMS [Concomitant]
  6. ROLAIDS [Concomitant]
  7. ZOLOFT [Concomitant]
     Dates: start: 20021001
  8. LOTENSIN [Concomitant]
     Dates: start: 20011001
  9. ATENOLOL [Concomitant]
     Dates: start: 20050307
  10. FUROSEMIDE [Concomitant]
     Dates: start: 20050307
  11. LEXAPRO [Concomitant]
     Dates: start: 20050307
  12. OMEPRAZOLE [Concomitant]
     Dates: start: 20110427
  13. ASPIRIN [Concomitant]

REACTIONS (7)
  - Cerebrovascular accident [Unknown]
  - Osteoporosis [Unknown]
  - Bone disorder [Unknown]
  - Multiple fractures [Unknown]
  - Diabetes mellitus [Unknown]
  - Vitamin D deficiency [Unknown]
  - Depression [Unknown]
